FAERS Safety Report 7588763-8 (Version None)
Quarter: 2011Q3

REPORT INFORMATION
  Report Type: 
  Country: None (occurrence: None)
  Receive Date: 20110705
  Receipt Date: 20110623
  Transmission Date: 20111222
  Serious: Yes (Hospitalization)
  Sender: FDA-Public Use
  Company Number: US-JNJFOC-20110612446

PATIENT
  Age: 28 Year
  Sex: Male

DRUGS (5)
  1. TRUVADA [Suspect]
     Indication: HIV INFECTION
     Dates: start: 20110512
  2. RITONAVIR [Suspect]
     Indication: HIV INFECTION
     Dates: end: 20110330
  3. TRUVADA [Suspect]
     Dates: start: 20110501, end: 20110502
  4. INTELENCE [Suspect]
     Indication: HIV INFECTION
     Route: 048
     Dates: start: 20110501, end: 20110502
  5. PREZISTA [Suspect]
     Indication: HIV INFECTION
     Route: 048
     Dates: start: 20110315, end: 20110330

REACTIONS (4)
  - JOINT SWELLING [None]
  - ARTHRALGIA [None]
  - PYREXIA [None]
  - RASH [None]
